FAERS Safety Report 9410462 (Version 2)
Quarter: 2013Q3

REPORT INFORMATION
  Report Type: Report from Study
  Country: CA (occurrence: CA)
  Receive Date: 20130719
  Receipt Date: 20130723
  Transmission Date: 20140515
  Serious: Yes (Other)
  Sender: FDA-Public Use
  Company Number: CA-ROCHE-1248943

PATIENT
  Sex: Female
  Weight: 90 kg

DRUGS (6)
  1. ACTEMRA [Suspect]
     Indication: RHEUMATOID ARTHRITIS
     Route: 042
     Dates: start: 20120703
  2. ACTEMRA [Suspect]
     Route: 042
     Dates: start: 20120731
  3. PLAQUENIL [Concomitant]
  4. ARTHROTEC [Concomitant]
  5. ARAVA [Concomitant]
  6. METHOTREXATE [Concomitant]

REACTIONS (2)
  - Foot deformity [Unknown]
  - Post procedural inflammation [Unknown]
